FAERS Safety Report 10182063 (Version 37)
Quarter: 2016Q3

REPORT INFORMATION
  Report Type: Report from Study
  Country: CA (occurrence: CA)
  Receive Date: 20140519
  Receipt Date: 20160916
  Transmission Date: 20161108
  Serious: Yes (Other)
  Sender: FDA-Public Use
  Company Number: CA-ROCHE-1385318

PATIENT
  Age: 75 Year
  Sex: Male

DRUGS (18)
  1. HYDROXYCHLOROQUINE [Concomitant]
     Active Substance: HYDROXYCHLOROQUINE
  2. PREDNISONE. [Concomitant]
     Active Substance: PREDNISONE
     Dosage: STRATED IN EARLY APR/2015
     Route: 065
  3. VALACYCLOVIR [Concomitant]
     Active Substance: VALACYCLOVIR HYDROCHLORIDE
  4. NEVANAC [Concomitant]
     Active Substance: NEPAFENAC
     Dosage: 0.1% FROM A 5ML BOTTLE
     Route: 065
  5. FOLIC ACID. [Concomitant]
     Active Substance: FOLIC ACID
  6. TYLENOL [Concomitant]
     Active Substance: ACETAMINOPHEN
     Route: 065
  7. OMEPRAZOLE. [Concomitant]
     Active Substance: OMEPRAZOLE
     Route: 065
  8. RISEDRONATE [Concomitant]
     Active Substance: RISEDRONATE SODIUM
  9. THYMOL [Concomitant]
     Active Substance: THYMOL
     Indication: INGROWING NAIL
     Route: 065
  10. ACTEMRA [Suspect]
     Active Substance: TOCILIZUMAB
     Indication: STILL^S DISEASE ADULT ONSET
     Route: 042
     Dates: start: 20140410
  11. VITAMIN B12 [Concomitant]
     Active Substance: CYANOCOBALAMIN
  12. ROSUVASTATIN. [Concomitant]
     Active Substance: ROSUVASTATIN
  13. PREDNISONE. [Concomitant]
     Active Substance: PREDNISONE
     Route: 065
  14. VIGAMOX [Concomitant]
     Active Substance: MOXIFLOXACIN HYDROCHLORIDE
     Dosage: 0.5% FROM 3ML BOTTAL
     Route: 065
  15. ASA [Concomitant]
     Active Substance: ASPIRIN
     Route: 065
  16. ASPIRIN. [Concomitant]
     Active Substance: ASPIRIN
     Dosage: BID FOR 2 MONTHS
     Route: 065
  17. NAPROXEN. [Concomitant]
     Active Substance: NAPROXEN
     Route: 065
     Dates: start: 201408, end: 201408
  18. ASPIRIN. [Concomitant]
     Active Substance: ASPIRIN
     Dosage: 1 TABLET
     Route: 065

REACTIONS (51)
  - Swelling [Unknown]
  - Pruritus [Unknown]
  - Nasopharyngitis [Unknown]
  - Limb discomfort [Unknown]
  - Hyperferritinaemia [Unknown]
  - Skin ulcer [Unknown]
  - Localised infection [Recovering/Resolving]
  - Skin cancer [Not Recovered/Not Resolved]
  - Drug ineffective [Unknown]
  - Oropharyngeal pain [Not Recovered/Not Resolved]
  - Blood test abnormal [Unknown]
  - Myositis [Recovering/Resolving]
  - Gingival disorder [Unknown]
  - Tendon injury [Unknown]
  - Infusion related reaction [Unknown]
  - Rash erythematous [Not Recovered/Not Resolved]
  - Arthritis [Not Recovered/Not Resolved]
  - Joint effusion [Unknown]
  - Blood pressure decreased [Unknown]
  - Muscle swelling [Not Recovered/Not Resolved]
  - Haemorrhage [Not Recovered/Not Resolved]
  - Hernia [Not Recovered/Not Resolved]
  - Joint swelling [Not Recovered/Not Resolved]
  - Tendon disorder [Not Recovered/Not Resolved]
  - Impaired healing [Unknown]
  - Muscle mass [Unknown]
  - Pain [Recovering/Resolving]
  - Arthralgia [Not Recovered/Not Resolved]
  - Juvenile idiopathic arthritis [Not Recovered/Not Resolved]
  - Staphylococcal infection [Recovered/Resolved]
  - Cataract [Not Recovered/Not Resolved]
  - Off label use [Unknown]
  - Rash macular [Not Recovered/Not Resolved]
  - Blood pressure increased [Unknown]
  - Blood pressure diastolic decreased [Unknown]
  - Heart rate decreased [Unknown]
  - Nasopharyngitis [Unknown]
  - Peripheral swelling [Unknown]
  - C-reactive protein increased [Unknown]
  - Dental caries [Not Recovered/Not Resolved]
  - Rash [Not Recovered/Not Resolved]
  - Erythema [Unknown]
  - Blood pressure systolic increased [Unknown]
  - Limb injury [Not Recovered/Not Resolved]
  - Blood pressure increased [Not Recovered/Not Resolved]
  - Infection [Recovering/Resolving]
  - Confusional state [Recovered/Resolved]
  - Erythema [Unknown]
  - Fungal infection [Not Recovered/Not Resolved]
  - Rash [Unknown]
  - Pyrexia [Unknown]

NARRATIVE: CASE EVENT DATE: 20140410
